FAERS Safety Report 9710496 (Version 2)
Quarter: 2013Q4

REPORT INFORMATION
  Report Type: Spontaneous
  Country: US (occurrence: US)
  Receive Date: 20131126
  Receipt Date: 20131126
  Transmission Date: 20140711
  Serious: No
  Sender: FDA-Public Use
  Company Number: US-BRISTOL-MYERS SQUIBB COMPANY-18832550

PATIENT
  Age: 56 Year
  Sex: Male

DRUGS (2)
  1. BYDUREON [Suspect]
     Indication: TYPE 2 DIABETES MELLITUS
     Route: 058
     Dates: start: 20120625, end: 20130412
  2. BYETTA [Suspect]
     Indication: TYPE 2 DIABETES MELLITUS
     Dosage: 2005-25JUN2012; STARTED AGAIN ON AN UNK DATE.
     Route: 058
     Dates: start: 2005

REACTIONS (1)
  - Blood glucose increased [Recovering/Resolving]
